FAERS Safety Report 17317405 (Version 3)
Quarter: 2020Q1

REPORT INFORMATION
  Report Type: Report from Study
  Country: None (occurrence: CO)
  Receive Date: 20200124
  Receipt Date: 20200218
  Transmission Date: 20200409
  Serious: Yes (Hospitalization, Other)
  Sender: FDA-Public Use
  Company Number: CO-ABBVIE-20K-036-3249214-00

PATIENT
  Sex: Male
  Weight: 95 kg

DRUGS (3)
  1. HUMIRA [Suspect]
     Active Substance: ADALIMUMAB
     Route: 058
     Dates: start: 2020
  2. HUMIRA [Suspect]
     Active Substance: ADALIMUMAB
     Indication: HIDRADENITIS
     Route: 058
     Dates: start: 20180718, end: 20191219
  3. HUMIRA [Suspect]
     Active Substance: ADALIMUMAB
     Route: 058
     Dates: start: 20200205, end: 20200207

REACTIONS (9)
  - Inflammation [Unknown]
  - Pain [Unknown]
  - Tachycardia [Unknown]
  - Hyperventilation [Unknown]
  - Faeces discoloured [Unknown]
  - Swelling [Not Recovered/Not Resolved]
  - Weight decreased [Unknown]
  - Fistula inflammation [Unknown]
  - Fistula [Not Recovered/Not Resolved]

NARRATIVE: CASE EVENT DATE: 2019
